FAERS Safety Report 4287671-8 (Version None)
Quarter: 2004Q1

REPORT INFORMATION
  Report Type: 
  Country: None (occurrence: None)
  Receive Date: 20040209
  Receipt Date: 20030825
  Transmission Date: 20041129
  Serious: No
  Sender: FDA-Public Use
  Company Number: US-GLAXOSMITHKLINE-A0423399A

PATIENT
  Sex: Female

DRUGS (2)
  1. PAXIL [Suspect]
     Dates: start: 20030701, end: 20030818
  2. ST. JOHNS WORT [Concomitant]
     Dates: end: 20030801

REACTIONS (1)
  - TINNITUS [None]
